FAERS Safety Report 18656821 (Version 3)
Quarter: 2020Q4

REPORT INFORMATION
  Report Type: Spontaneous
  Country: US (occurrence: US)
  Receive Date: 20201224
  Receipt Date: 20201231
  Transmission Date: 20210114
  Serious: Yes (Other)
  Sender: FDA-Public Use
  Company Number: US-UNITED THERAPEUTICS-UNT-2020-017863

PATIENT
  Sex: Female
  Weight: 73.02 kg

DRUGS (7)
  1. TYVASO [Suspect]
     Active Substance: TREPROSTINIL
     Dosage: UNK
  2. TYVASO [Suspect]
     Active Substance: TREPROSTINIL
     Dosage: 18-54 ?G, QID
  3. TYVASO [Suspect]
     Active Substance: TREPROSTINIL
     Indication: PULMONARY ARTERIAL HYPERTENSION
     Dosage: UNK
     Dates: start: 20200806
  4. ADEMPAS [Suspect]
     Active Substance: RIOCIGUAT
     Dosage: 1 MG, TID
     Route: 065
  5. TYVASO [Suspect]
     Active Substance: TREPROSTINIL
     Dosage: UNK
  6. ADEMPAS [Suspect]
     Active Substance: RIOCIGUAT
     Indication: PRODUCT USED FOR UNKNOWN INDICATION
     Dosage: 1.5 MG
     Route: 065
     Dates: end: 2020
  7. ADEMPAS [Suspect]
     Active Substance: RIOCIGUAT
     Dosage: 0.75 MG, TID
     Route: 065
     Dates: start: 2020

REACTIONS (8)
  - Dyspnoea [Not Recovered/Not Resolved]
  - Type 2 diabetes mellitus [Unknown]
  - Peripheral swelling [Unknown]
  - Pulmonary hypertension [Not Recovered/Not Resolved]
  - Joint swelling [Unknown]
  - Gout [Unknown]
  - Therapy non-responder [Unknown]
  - Oxygen saturation decreased [Unknown]

NARRATIVE: CASE EVENT DATE: 2020
